FAERS Safety Report 8917883 (Version 1)
Quarter: 2012Q4

REPORT INFORMATION
  Report Type: 
  Country: US (occurrence: US)
  Receive Date: 20121120
  Receipt Date: 20121120
  Transmission Date: 20130627
  Serious: No
  Sender: FDA-Public Use
  Company Number: US-ASTRAZENECA-2012SE15393

PATIENT
  Age: 36 Year
  Sex: Female
  Weight: 90.2 kg

DRUGS (2)
  1. NEXIUM [Suspect]
     Route: 048
  2. NEXIUM [Suspect]
     Route: 048

REACTIONS (3)
  - Exposure during pregnancy [Unknown]
  - Gastrooesophageal reflux disease [Unknown]
  - Drug prescribing error [Unknown]
